FAERS Safety Report 9471522 (Version 2)
Quarter: 2013Q3

REPORT INFORMATION
  Report Type: Spontaneous
  Country: JP (occurrence: None)
  Receive Date: 20130819
  Receipt Date: 20130830
  Transmission Date: 20140515
  Serious: Yes (Hospitalization)
  Sender: FDA-Public Use
  Company Number: ENT 2013-0136

PATIENT
  Sex: Female

DRUGS (3)
  1. COMTAN [Suspect]
     Indication: PARKINSON^S DISEASE
     Route: 048
  2. PARKISTON [Concomitant]
  3. DOPS [Concomitant]

REACTIONS (1)
  - Cholangitis [None]
